FAERS Safety Report 7269832-9 (Version None)
Quarter: 2011Q1

REPORT INFORMATION
  Report Type: 
  Country: None (occurrence: None)
  Receive Date: 20110202
  Receipt Date: 20110124
  Transmission Date: 20110831
  Serious: Yes (Death, Hospitalization)
  Sender: FDA-Public Use
  Company Number: DE-JNJFOC-20100401588

PATIENT
  Age: 82 Year
  Sex: Female

DRUGS (4)
  1. REOPRO [Suspect]
     Indication: PERCUTANEOUS CORONARY INTERVENTION
     Dosage: 20:15 TO 02:00
     Route: 042
  2. REOPRO [Suspect]
     Dosage: BOLUS FROM 20:12 TO 20:13
     Route: 042
  3. REOPRO [Suspect]
     Indication: ACUTE MYOCARDIAL INFARCTION
     Dosage: 20:15 TO 02:00
     Route: 042
  4. REOPRO [Suspect]
     Dosage: BOLUS FROM 20:12 TO 20:13
     Route: 042

REACTIONS (3)
  - HAEMATEMESIS [None]
  - CARDIAC FAILURE CONGESTIVE [None]
  - RENAL FAILURE ACUTE [None]
